FAERS Safety Report 16623326 (Version 2)
Quarter: 2019Q4

REPORT INFORMATION
  Report Type: Spontaneous
  Country: CA (occurrence: CA)
  Receive Date: 20190723
  Receipt Date: 20191024
  Transmission Date: 20200122
  Serious: Yes (Other)
  Sender: FDA-Public Use
  Company Number: CA-TEVA-2019-CA-1079925

PATIENT
  Age: 49 Year
  Sex: Male

DRUGS (4)
  1. BUTRANS [Suspect]
     Active Substance: BUPRENORPHINE
     Indication: HEADACHE
     Route: 062
  2. DEMEROL [Suspect]
     Active Substance: MEPERIDINE HYDROCHLORIDE
     Indication: HEADACHE
     Route: 065
  3. CODEINE [Suspect]
     Active Substance: CODEINE
     Indication: HEADACHE
     Route: 065
  4. MORPHINE SULFATE. [Suspect]
     Active Substance: MORPHINE SULFATE
     Indication: HEADACHE
     Route: 065

REACTIONS (8)
  - Drug abuse [Unknown]
  - Intentional product misuse [Unknown]
  - Accidental overdose [Unknown]
  - Asthenia [Unknown]
  - Drug ineffective [Unknown]
  - Dyspnoea [Unknown]
  - Euphoric mood [Unknown]
  - Mobility decreased [Unknown]
